FAERS Safety Report 7917112-8 (Version None)
Quarter: 2011Q4

REPORT INFORMATION
  Report Type: 
  Country: None (occurrence: None)
  Receive Date: 20111116
  Receipt Date: 20101007
  Transmission Date: 20120403
  Serious: No
  Sender: FDA-Public Use
  Company Number: US-BAYER-201036264NA

PATIENT
  Age: 60 Year
  Sex: Male

DRUGS (1)
  1. NEXAVAR [Suspect]
     Indication: HEPATIC NEOPLASM MALIGNANT
     Dosage: 400 MG, BID
     Route: 048
     Dates: start: 20100915

REACTIONS (5)
  - SALIVARY HYPERSECRETION [None]
  - PAIN IN EXTREMITY [None]
  - GLOSSODYNIA [None]
  - TONGUE COATED [None]
  - MUCOSAL INFLAMMATION [None]
